FAERS Safety Report 4566919-6 (Version None)
Quarter: 2005Q1

REPORT INFORMATION
  Report Type: 
  Country: None (occurrence: None)
  Receive Date: 20050201
  Receipt Date: 20030409
  Transmission Date: 20050727
  Serious: Yes (Other)
  Sender: FDA-Public Use
  Company Number: US-BRISTOL-MYERS SQUIBB COMPANY-12242434

PATIENT
  Age: 36 Year
  Sex: Female

DRUGS (3)
  1. STADOL [Suspect]
     Indication: HEADACHE
     Dosage: DURATION: LESS THAN 1 YEAR
     Route: 045
     Dates: start: 19980501, end: 19980101
  2. PROPOXYPHENE + APAP [Concomitant]
  3. HYDROCODONE + ACETAMINOPHEN [Concomitant]

REACTIONS (4)
  - ASTHENIA [None]
  - DEPENDENCE [None]
  - DIZZINESS [None]
  - DYSPNOEA [None]
